FAERS Safety Report 20850766 (Version 2)
Quarter: 2022Q2

REPORT INFORMATION
  Report Type: Report from Study
  Country: BE (occurrence: BE)
  Receive Date: 20220519
  Receipt Date: 20220524
  Transmission Date: 20220720
  Serious: Yes (Hospitalization)
  Sender: FDA-Public Use
  Company Number: BE-ROCHE-3049803

PATIENT
  Age: 59 Year
  Sex: Female
  Weight: 63.6 kg

DRUGS (16)
  1. CARBOPLATIN [Suspect]
     Active Substance: CARBOPLATIN
     Indication: Breast cancer
     Dosage: UNK
     Route: 042
     Dates: start: 20220308
  2. CARBOPLATIN [Suspect]
     Active Substance: CARBOPLATIN
     Dosage: LAST DOSE BEFORE SAE, NO. OF COURSE, 4
     Route: 042
     Dates: start: 20220405
  3. PACLITAXEL [Suspect]
     Active Substance: PACLITAXEL
     Indication: Breast cancer
     Dosage: UNK
     Route: 042
     Dates: start: 20220308
  4. PACLITAXEL [Suspect]
     Active Substance: PACLITAXEL
     Dosage: LAST DOSE BEFORE SAE, NO. OF COURSE 4
     Route: 042
     Dates: start: 20220405
  5. ATEZOLIZUMAB [Suspect]
     Active Substance: ATEZOLIZUMAB
     Indication: Breast cancer
     Dosage: UNK
     Route: 042
     Dates: start: 20220104
  6. ATEZOLIZUMAB [Suspect]
     Active Substance: ATEZOLIZUMAB
     Dosage: LAST DOSE BEFORE SAE, NO. OF COURSE 5
     Route: 042
     Dates: start: 20220215
  7. ATEZOLIZUMAB [Suspect]
     Active Substance: ATEZOLIZUMAB
     Dosage: LAST DOSE BEFORE SAE
     Route: 042
     Dates: start: 20220329
  8. PHESGO [Suspect]
     Active Substance: HYALURONIDASE-ZZXF\PERTUZUMAB\TRASTUZUMAB
     Indication: Breast cancer
     Dosage: UNK
     Route: 058
     Dates: start: 20220308
  9. PHESGO [Suspect]
     Active Substance: HYALURONIDASE-ZZXF\PERTUZUMAB\TRASTUZUMAB
     Dosage: LAST DOSE BEFORE SAE, NO.OF COURSE 2
     Route: 058
     Dates: start: 20220329
  10. EPIRUBICIN [Concomitant]
     Active Substance: EPIRUBICIN
     Dosage: 157 MG
     Route: 042
     Dates: start: 20220104, end: 20220215
  11. CYCLOPHOSPHAMIDE [Concomitant]
     Active Substance: CYCLOPHOSPHAMIDE
     Dosage: 1044 MG
     Route: 042
     Dates: start: 20220104, end: 20220215
  12. ONDANSETRON [Concomitant]
     Active Substance: ONDANSETRON
     Dosage: 8 MG
     Route: 048
     Dates: start: 20220412, end: 20220412
  13. LITICAN [ALIZAPRIDE HYDROCHLORIDE] [Concomitant]
     Dosage: 200 MG
     Route: 042
     Dates: start: 20220410, end: 20220412
  14. LITICAN [ALIZAPRIDE HYDROCHLORIDE] [Concomitant]
     Dosage: 150 MG
     Route: 048
     Dates: start: 20220412, end: 20220415
  15. BUTYLSCOPOLAMINE BROMIDE [Concomitant]
     Active Substance: BUTYLSCOPOLAMINE BROMIDE
     Dosage: 20 MG
     Route: 042
     Dates: start: 20220410, end: 20220412
  16. TRAMADOL HYDROCHLORIDE [Concomitant]
     Active Substance: TRAMADOL HYDROCHLORIDE
     Dosage: 200 MG
     Route: 042
     Dates: start: 20220410, end: 20220412

REACTIONS (5)
  - Enteritis [Recovered/Resolved]
  - Abdominal pain [Recovered/Resolved]
  - Diarrhoea [Recovered/Resolved]
  - Vomiting [Recovered/Resolved]
  - Infusion related reaction [Recovered/Resolved]

NARRATIVE: CASE EVENT DATE: 20220308
